FAERS Safety Report 7744926-X (Version None)
Quarter: 2011Q3

REPORT INFORMATION
  Report Type: 
  Country: None (occurrence: None)
  Receive Date: 20110913
  Receipt Date: 20110902
  Transmission Date: 20111222
  Serious: Yes (Death)
  Sender: FDA-Public Use
  Company Number: US-BIOGENIDEC-2011BI033873

PATIENT
  Age: 51 Year
  Sex: Female
  Weight: 47 kg

DRUGS (10)
  1. GILENYA [Concomitant]
     Indication: MULTIPLE SCLEROSIS
     Route: 048
     Dates: start: 20101011, end: 20110630
  2. SOMA [Concomitant]
     Indication: INSOMNIA
     Route: 048
     Dates: start: 20030101, end: 20110630
  3. PRAVACHOL [Concomitant]
     Indication: HYPERLIPIDAEMIA
     Route: 048
     Dates: end: 20110630
  4. BENICAR [Concomitant]
     Indication: HYPERTENSION
     Route: 048
     Dates: end: 20110630
  5. MARINOL [Concomitant]
     Indication: NAUSEA
     Route: 048
     Dates: start: 20071027, end: 20110630
  6. ULTRAM [Concomitant]
     Indication: PAIN
     Route: 048
     Dates: start: 20100329, end: 20110630
  7. MOBIC [Concomitant]
     Indication: PAIN
     Route: 048
     Dates: start: 20110228, end: 20110630
  8. TYSABRI [Suspect]
     Indication: MULTIPLE SCLEROSIS
     Route: 042
     Dates: start: 20071101, end: 20090430
  9. AMBIEN [Concomitant]
     Indication: INSOMNIA
     Route: 048
     Dates: start: 20070126, end: 20110601
  10. MIRAPEX [Concomitant]
     Indication: RESTLESS LEGS SYNDROME
     Route: 048
     Dates: start: 20071221, end: 20110630

REACTIONS (1)
  - DEATH [None]
